FAERS Safety Report 9187176 (Version 1)
Quarter: 2013Q1

REPORT INFORMATION
  Report Type: Report from Study
  Country: CA (occurrence: CA)
  Receive Date: 20130325
  Receipt Date: 20130325
  Transmission Date: 20140127
  Serious: Yes (Disabling)
  Sender: FDA-Public Use
  Company Number: CA-ROCHE-1067719

PATIENT
  Age: 71 Year
  Sex: Female

DRUGS (3)
  1. BEVACIZUMAB [Suspect]
     Indication: EYE DISORDER
     Route: 031
     Dates: start: 201112, end: 20120410
  2. SYSTANE [Suspect]
     Indication: EYE DISORDER
     Route: 047
  3. CELEXA [Concomitant]
     Dosage: START DATE REPORETD AS YEARS
     Route: 048

REACTIONS (3)
  - Vitreous floaters [Recovered/Resolved]
  - Retinal disorder [Not Recovered/Not Resolved]
  - Hypersensitivity [Recovered/Resolved]
